FAERS Safety Report 25758040 (Version 1)
Quarter: 2025Q3

REPORT INFORMATION
  Report Type: Spontaneous
  Country: CN (occurrence: CN)
  Receive Date: 20250903
  Receipt Date: 20250903
  Transmission Date: 20251020
  Serious: Yes (Hospitalization, Other)
  Sender: ABBVIE
  Company Number: CN-ABBVIE-6441809

PATIENT
  Age: 65 Year
  Sex: Male
  Weight: 71 kg

DRUGS (5)
  1. VENETOCLAX [Suspect]
     Active Substance: VENETOCLAX
     Indication: Chemotherapy
     Dosage: VENETOCLAX 400 MG D3-14.
     Route: 048
     Dates: start: 20250803, end: 20250814
  2. VENETOCLAX [Suspect]
     Active Substance: VENETOCLAX
     Indication: Chemotherapy
     Dosage: VENETOCLAX 200 MG D2
     Route: 048
     Dates: start: 20250802, end: 20250802
  3. VENETOCLAX [Suspect]
     Active Substance: VENETOCLAX
     Indication: Chemotherapy
     Dosage: VENETOCLAX 100 MG D1
     Route: 048
     Dates: start: 20250801, end: 20250901
  4. WATER FOR INJECTION [Concomitant]
     Active Substance: WATER
     Indication: Vehicle solution use
     Route: 041
     Dates: start: 20250801, end: 20250809
  5. AZACITIDINE [Suspect]
     Active Substance: AZACITIDINE
     Indication: Chemotherapy
     Dosage: AZACITIDINE 100 MG NINE DAYS
     Route: 041
     Dates: start: 20250801, end: 20250809

REACTIONS (5)
  - Myelosuppression [Recovering/Resolving]
  - Pyrexia [Recovering/Resolving]
  - Anaemia [Unknown]
  - Chills [Unknown]
  - Chest discomfort [Unknown]

NARRATIVE: CASE EVENT DATE: 20250801
